FAERS Safety Report 19549819 (Version 1)
Quarter: 2021Q3

REPORT INFORMATION
  Report Type: Spontaneous
  Country: IT (occurrence: IT)
  Receive Date: 20210714
  Receipt Date: 20210714
  Transmission Date: 20211014
  Serious: Yes (Hospitalization, Other)
  Sender: FDA-Public Use
  Company Number: IT-LUPIN PHARMACEUTICALS INC.-2021-11855

PATIENT
  Age: 71 Year
  Sex: Female

DRUGS (1)
  1. TRIAMCINOLONE ACETONIDE. [Suspect]
     Active Substance: TRIAMCINOLONE ACETONIDE
     Indication: CUTANEOUS LEISHMANIASIS
     Dosage: UNK, ONE PER WEEK FOR 3 WEEKS
     Route: 026

REACTIONS (3)
  - Cutaneous leishmaniasis [Recovered/Resolved]
  - Psychomotor hyperactivity [Recovered/Resolved]
  - Disease progression [Recovered/Resolved]
